FAERS Safety Report 18864541 (Version 2)
Quarter: 2021Q1

REPORT INFORMATION
  Report Type: Spontaneous
  Country: TR (occurrence: TR)
  Receive Date: 20210208
  Receipt Date: 20210208
  Transmission Date: 20210420
  Serious: Yes (Other)
  Sender: FDA-Public Use
  Company Number: TR-ABBVIE-21P-161-3764514-00

PATIENT
  Sex: Male

DRUGS (3)
  1. BUSCOPAN [Suspect]
     Active Substance: BUTYLSCOPOLAMINE BROMIDE
     Indication: PRODUCT USED FOR UNKNOWN INDICATION
     Dosage: 2 DOSAGE FORMS PER DAY AS IN THE MORNING AND EVENING
     Route: 048
     Dates: start: 20210129, end: 20210201
  2. DICETEL [Suspect]
     Active Substance: PINAVERIUM BROMIDE
     Indication: PRODUCT USED FOR UNKNOWN INDICATION
     Route: 048
     Dates: start: 20210129, end: 20210201
  3. KREON [Suspect]
     Active Substance: PANCRELIPASE
     Indication: PRODUCT USED FOR UNKNOWN INDICATION
     Route: 048
     Dates: start: 20210129, end: 20210201

REACTIONS (2)
  - Skin lesion [Not Recovered/Not Resolved]
  - Dermatitis bullous [Not Recovered/Not Resolved]

NARRATIVE: CASE EVENT DATE: 202101
